FAERS Safety Report 9041783 (Version 1)
Quarter: 2013Q1

REPORT INFORMATION
  Report Type: Report from Study
  Country: US (occurrence: US)
  Receive Date: 20130129
  Receipt Date: 20130129
  Transmission Date: 20140127
  Serious: No
  Sender: FDA-Public Use
  Company Number: US-ABBOTT-12P-163-0889721-00

PATIENT
  Age: 50 Year
  Sex: Female

DRUGS (20)
  1. HUMIRA 40 MG/0.8 ML PEN [Suspect]
     Indication: CROHN^S DISEASE
     Dates: start: 20111221
  2. HUMIRA 40 MG/0.8 ML PEN [Suspect]
     Dates: start: 20120104
  3. HUMIRA 40 MG/0.8 ML PEN [Suspect]
     Dates: end: 20120201
  4. LEVEMIR [Concomitant]
     Indication: DIABETES MELLITUS
     Dosage: 60U IN MORNING AND 60U AT BEDTIME
  5. HUMALOG INSULIN [Concomitant]
     Indication: DIABETES MELLITUS
     Dosage: SLIDING SCALE
  6. EFFEXOR [Concomitant]
     Indication: DEPRESSION
     Dosage: AT BEDTIME
  7. XANAX [Concomitant]
     Indication: ANXIETY
     Dosage: TID AS REQUIRED
  8. ASPIRIN [Concomitant]
     Indication: ANGIOPLASTY
  9. TRICOR [Concomitant]
     Indication: BLOOD CHOLESTEROL INCREASED
  10. LUNESTA [Concomitant]
     Indication: INSOMNIA
     Dosage: AT BEDTIME
  11. NEXIUM [Concomitant]
     Indication: GASTROOESOPHAGEAL REFLUX DISEASE
  12. LISINOPRIL [Concomitant]
     Indication: HYPERTENSION
  13. LEVOTHYROXINE [Concomitant]
     Indication: HYPOTHYROIDISM
  14. SIMVASTIN [Concomitant]
     Indication: BLOOD CHOLESTEROL INCREASED
     Dosage: AT BEDTIME
  15. IMURAN [Concomitant]
     Indication: CROHN^S DISEASE
  16. HYDROCODONE [Concomitant]
     Indication: PAIN
     Dosage: AS REQUIRED Q 6 HOURS
  17. FOLIC ACID [Concomitant]
     Indication: PRODUCT USED FOR UNKNOWN INDICATION
  18. NIACIN [Concomitant]
     Indication: PRODUCT USED FOR UNKNOWN INDICATION
  19. VITAMIN C [Concomitant]
     Indication: PRODUCT USED FOR UNKNOWN INDICATION
  20. FISH OIL [Concomitant]
     Indication: PRODUCT USED FOR UNKNOWN INDICATION

REACTIONS (6)
  - Oropharyngeal pain [Not Recovered/Not Resolved]
  - Fatigue [Recovering/Resolving]
  - Wrong technique in drug usage process [Unknown]
  - Incorrect dose administered [Unknown]
  - Upper respiratory tract congestion [Not Recovered/Not Resolved]
  - Pyrexia [Not Recovered/Not Resolved]
